FAERS Safety Report 5056161-7 (Version None)
Quarter: 2006Q3

REPORT INFORMATION
  Report Type: 
  Country: None (occurrence: None)
  Receive Date: 20060720
  Receipt Date: 20060717
  Transmission Date: 20061208
  Serious: Yes (Hospitalization)
  Sender: FDA-Public Use
  Company Number: 453942

PATIENT
  Age: 4 Year
  Sex: Male

DRUGS (6)
  1. ARTIST [Suspect]
     Indication: PROPHYLAXIS
     Dosage: 3MG PER DAY
     Route: 048
     Dates: start: 20050413
  2. ENALAPRIL MALEATE [Concomitant]
     Indication: DRUG USE FOR UNKNOWN INDICATION
     Route: 065
  3. ANGINAL [Concomitant]
     Indication: DRUG USE FOR UNKNOWN INDICATION
     Route: 065
  4. POTASSIUM GLUCONATE TAB [Concomitant]
     Indication: DRUG USE FOR UNKNOWN INDICATION
     Route: 065
  5. LASIX [Concomitant]
     Indication: DRUG USE FOR UNKNOWN INDICATION
     Route: 065
  6. ALDACTONE [Concomitant]
     Indication: DRUG USE FOR UNKNOWN INDICATION
     Route: 065

REACTIONS (15)
  - CARDIAC FAILURE [None]
  - CARDIAC OUTPUT DECREASED [None]
  - CIRCULATORY COLLAPSE [None]
  - COUGH [None]
  - DEHYDRATION [None]
  - DIARRHOEA [None]
  - FLUID INTAKE REDUCED [None]
  - HYPOGLYCAEMIA [None]
  - INFLUENZA [None]
  - ORAL INTAKE REDUCED [None]
  - PALLOR [None]
  - PARALYSIS [None]
  - PHARYNGOLARYNGEAL PAIN [None]
  - SHOCK HYPOGLYCAEMIC [None]
  - SOMNOLENCE [None]
